FAERS Safety Report 9276557 (Version 1)
Quarter: 2012Q4

REPORT INFORMATION
  Report Type: Spontaneous
  Country: GR (occurrence: None)
  Receive Date: 20121109
  Receipt Date: 20121109
  Transmission Date: 20130627
  Serious: Yes (Hospitalization)
  Sender: FDA-Public Use
  Company Number: 2012S1000307

PATIENT
  Age: 61 Year
  Sex: Male

DRUGS (7)
  1. CUBICIN [Suspect]
     Indication: ENTEROCOCCUS TEST POSITIVE
     Dosage: U U ; UNK ; U
  2. CUBICIN [Suspect]
     Dosage: U U ; UNK ; U
  3. CUBICIN [Suspect]
     Dosage: U U ; UNK ; U
  4. MEROPENEM [Concomitant]
  5. CIPROFLOXACIN [Concomitant]
  6. CLINDAMYCIN [Concomitant]
  7. VORICONAZOLE [Concomitant]

REACTIONS (4)
  - Osteomyelitis [None]
  - Inflammation [None]
  - Necrosis [None]
  - Amputation [None]
